FAERS Safety Report 8078257-8 (Version None)
Quarter: 2012Q1

REPORT INFORMATION
  Report Type: 
  Country: None (occurrence: None)
  Receive Date: 20120123
  Receipt Date: 20120109
  Transmission Date: 20120608
  Serious: Yes (Life-Threatening, Hospitalization, Other)
  Sender: FDA-Public Use
  Company Number: 2012MA000545

PATIENT
  Age: 55 Year
  Sex: Male

DRUGS (12)
  1. LABETALOL HCL [Suspect]
     Indication: HYPERTENSION
     Dosage: ;;IV
     Route: 042
  2. ALBUMIN (HUMAN) [Suspect]
     Indication: HYPERTENSION
     Dosage: 5% BOLUS;QD;IV
     Route: 042
  3. DOBUTAMINE HCL [Suspect]
     Dosage: ;PRN;IV
     Route: 042
  4. NOREPINEPHRINE BITARTRATE [Suspect]
     Dosage: ;PRN;IV
     Route: 042
  5. LORAZEPAM [Suspect]
     Dosage: PRN;IV
     Route: 042
  6. OMEPRAZOLE [Suspect]
  7. VASOPRESSIN [Suspect]
     Dosage: ;PRN;IV
     Route: 042
  8. ESOMEPRAZOLE SODIUM [Suspect]
     Dosage: 40 MG;BID;IV
     Route: 042
  9. HYDROCHLOROTHIAZIDE [Concomitant]
  10. CAPTOPRIL [Concomitant]
  11. PHENYTOIN [Suspect]
     Indication: CONVULSION PROPHYLAXIS
     Dosage: 100 MG;X1; IV
     Route: 042
  12. FOSPHENYTOIN [Suspect]
     Indication: CONVULSION PROPHYLAXIS
     Dosage: ;;IV
     Route: 042

REACTIONS (6)
  - ISCHAEMIC HEPATITIS [None]
  - RENAL FAILURE ACUTE [None]
  - PNEUMONIA [None]
  - HYPOTENSION [None]
  - THROMBOCYTOPENIA [None]
  - TREATMENT NONCOMPLIANCE [None]
